FAERS Safety Report 18809117 (Version 1)
Quarter: 2021Q1

REPORT INFORMATION
  Report Type: Spontaneous
  Country: NL (occurrence: NL)
  Receive Date: 20210129
  Receipt Date: 20210129
  Transmission Date: 20210419
  Serious: Yes (Disabling, Other)
  Sender: FDA-Public Use
  Company Number: NL-TEVA-2021-NL-1873184

PATIENT
  Age: 36 Year
  Sex: Female
  Weight: 62 kg

DRUGS (5)
  1. LEVOCETIRIZINE TABLET FO 5MG / BRAND NAME NOT SPECIFIED [Concomitant]
     Active Substance: LEVOCETIRIZINE
     Dosage: 5 MG (MILLIGRAM), THERAPY START DATE; THERAPY END DATE : ASKED BUT UNKNOWN
  2. BECLOMETASON NEUSSPRAY 50UG/DO / BRAND NAME NOT SPECIFIED [Suspect]
     Active Substance: BECLOMETHASONE DIPROPIONATE
     Indication: MITE ALLERGY
  3. SYSTANE ULTRA HYDRATERENDE OOGDRUPPELS [Concomitant]
     Dosage: THERAPY START DATE; THERAPY END DATE : ASKED BUT UNKNOWN
  4. AZELASTINE/FLUTICASON NEUSSPRAY 137/50UG/DO / DYMISTA NEUSSPRAY 137/50 [Concomitant]
     Dosage: 137/50 UG / DOSE (MICROGRAMS PER DOSE), THERAPY START DATE; THERAPY END DATE : ASKED BUT UNKNOWN
  5. BECLOMETASON NEUSSPRAY 50UG/DO / BRAND NAME NOT SPECIFIED [Suspect]
     Active Substance: BECLOMETHASONE DIPROPIONATE
     Indication: SEASONAL ALLERGY
     Dosage: 100 MICROGRAM DAILY; 2X A DAY 1X IN EACH NOSTRIL FOR OVER 25 YEARS + OVER 6 MONTHS A YEAR, THERAPY E
     Dates: start: 1991

REACTIONS (12)
  - Fatigue [Not Recovered/Not Resolved]
  - Dry eye [Not Recovered/Not Resolved]
  - Dry mouth [Not Recovered/Not Resolved]
  - Epistaxis [Not Recovered/Not Resolved]
  - Stress [Unknown]
  - Poor quality sleep [Unknown]
  - Nasal dryness [Not Recovered/Not Resolved]
  - Rosacea [Unknown]
  - Angioedema [Unknown]
  - Myalgia [Unknown]
  - Eye inflammation [Not Recovered/Not Resolved]
  - Menopausal symptoms [Unknown]

NARRATIVE: CASE EVENT DATE: 2006
